FAERS Safety Report 14238198 (Version 2)
Quarter: 2017Q4

REPORT INFORMATION
  Report Type: Spontaneous
  Country: US (occurrence: US)
  Receive Date: 20171130
  Receipt Date: 20171227
  Transmission Date: 20180321
  Serious: No
  Sender: FDA-Public Use
  Company Number: US-CELGENEUS-USA-20171109116

PATIENT
  Age: 61 Year
  Sex: Female

DRUGS (2)
  1. OTEZLA [Suspect]
     Active Substance: APREMILAST
     Indication: PSORIASIS
     Dosage: 60 MILLIGRAM
     Route: 048
     Dates: start: 20160616
  2. OTEZLA [Suspect]
     Active Substance: APREMILAST
     Indication: JUVENILE PSORIATIC ARTHRITIS

REACTIONS (1)
  - Headache [Unknown]

NARRATIVE: CASE EVENT DATE: 20171127
